FAERS Safety Report 7959080-9 (Version None)
Quarter: 2011Q4

REPORT INFORMATION
  Report Type: 
  Country: None (occurrence: None)
  Receive Date: 20111206
  Receipt Date: 20111206
  Transmission Date: 20120403
  Serious: Yes (Death)
  Sender: FDA-Public Use
  Company Number: None

PATIENT
  Age: 35 Year
  Sex: Female
  Weight: 53.2 kg

DRUGS (5)
  1. OXYCONTIN [Concomitant]
  2. TEMSIROLIMUS [Suspect]
     Indication: CERVIX CANCER METASTATIC
     Dosage: 25 MG
     Route: 042
     Dates: start: 20111107, end: 20111107
  3. DILAUDID [Concomitant]
  4. VINORELBINE [Concomitant]
     Indication: CERVIX CANCER METASTATIC
     Dosage: 25MG/M2
     Route: 042
     Dates: start: 20111107, end: 20111107
  5. MANTAC [Concomitant]

REACTIONS (5)
  - BLOOD POTASSIUM DECREASED [None]
  - PLATELET COUNT DECREASED [None]
  - HAEMOGLOBIN DECREASED [None]
  - MALAISE [None]
  - OEDEMA PERIPHERAL [None]
